FAERS Safety Report 4437367-4 (Version None)
Quarter: 2004Q3

REPORT INFORMATION
  Report Type: 
  Country: None (occurrence: None)
  Receive Date: 20040726
  Receipt Date: 20040412
  Transmission Date: 20050211
  Serious: No
  Sender: FDA-Public Use
  Company Number: USA040463796

PATIENT
  Age: 74 Year
  Sex: Female

DRUGS (6)
  1. FORTEO [Suspect]
     Indication: OSTEOPOROSIS
     Dosage: 20 UG DAY
     Dates: start: 20040101, end: 20040301
  2. PHENERGAN [Concomitant]
  3. PAROXETINE HCL [Concomitant]
  4. KLONOPIN [Concomitant]
  5. CYANOCOBALAMIN [Concomitant]
  6. ATENOLOL [Concomitant]

REACTIONS (2)
  - CHEST WALL PAIN [None]
  - DECREASED APPETITE [None]
